FAERS Safety Report 14716798 (Version 2)
Quarter: 2018Q3

REPORT INFORMATION
  Report Type: Report from Study
  Country: DE (occurrence: DE)
  Receive Date: 20180404
  Receipt Date: 20180822
  Transmission Date: 20181010
  Serious: Yes (Hospitalization, Other)
  Sender: FDA-Public Use
  Company Number: PHHY2018DE003734

PATIENT
  Sex: Female

DRUGS (2)
  1. L?THYROXIN [Concomitant]
     Active Substance: LEVOTHYROXINE SODIUM
     Indication: HYPOTHYROIDISM
     Dosage: 125 MG, QD
     Route: 048
     Dates: start: 20070307
  2. GILENYA [Suspect]
     Active Substance: FINGOLIMOD HYDROCHLORIDE
     Indication: MULTIPLE SCLEROSIS
     Dosage: 0.5 MG, QD
     Route: 048
     Dates: start: 20121114

REACTIONS (11)
  - Herpes zoster [Recovered/Resolved]
  - IVth nerve paralysis [Recovered/Resolved]
  - Facial paralysis [Unknown]
  - Lacrimation increased [Recovered/Resolved]
  - Photophobia [Recovered/Resolved]
  - Hyperacusis [Recovered/Resolved]
  - Post herpetic neuralgia [Not Recovered/Not Resolved]
  - Meningitis [Recovered/Resolved]
  - Headache [Recovered/Resolved]
  - Headache [Recovered/Resolved]
  - Nausea [Recovered/Resolved]

NARRATIVE: CASE EVENT DATE: 20160301
